FAERS Safety Report 8130274-5 (Version None)
Quarter: 2012Q1

REPORT INFORMATION
  Report Type: 
  Country: None (occurrence: None)
  Receive Date: 20120210
  Receipt Date: 20120203
  Transmission Date: 20120608
  Serious: Yes (Hospitalization)
  Sender: FDA-Public Use
  Company Number: PHHY2012ES009198

PATIENT
  Age: 79 Year
  Sex: Female

DRUGS (9)
  1. ACETYLSALICYLIC ACID SRT [Concomitant]
  2. SIMVASTATIN [Concomitant]
  3. METFORMIN HCL [Concomitant]
  4. ALPRAZOLAM [Concomitant]
  5. RASILEZ [Suspect]
     Indication: HYPERTENSION
     Dosage: 300 MG, QD
     Route: 048
     Dates: start: 20091101, end: 20120101
  6. BECLOMETASONE DIPROPIONATE /FORMOTEROL HFA-PMD-INHALER [Concomitant]
  7. LISINOPRIL [Concomitant]
  8. PANTOPRAZOLE [Concomitant]
  9. OPENVAS PLUS [Suspect]
     Indication: HYPERTENSION
     Dosage: 1 DF, QD
     Route: 048
     Dates: start: 20091101

REACTIONS (2)
  - OROPHARYNGEAL PAIN [None]
  - CHEST PAIN [None]
